FAERS Safety Report 5494181-9 (Version None)
Quarter: 2007Q4

REPORT INFORMATION
  Report Type: 
  Country: None (occurrence: None)
  Receive Date: 20071024
  Receipt Date: 20071016
  Transmission Date: 20080405
  Serious: Yes (Other)
  Sender: FDA-Public Use
  Company Number: PHBS2007ZA17217

PATIENT
  Age: 49 Year
  Sex: Female

DRUGS (1)
  1. ZOMETA [Suspect]
     Dosage: 4 MG, UNK
     Route: 042

REACTIONS (2)
  - OSTEONECROSIS [None]
  - TOOTH LOSS [None]
